FAERS Safety Report 22102550 (Version 1)
Quarter: 2023Q1

REPORT INFORMATION
  Report Type: Spontaneous
  Country: GB (occurrence: GB)
  Receive Date: 20230316
  Receipt Date: 20230316
  Transmission Date: 20230418
  Serious: Yes (Other)
  Sender: FDA-Public Use
  Company Number: None

PATIENT
  Age: 90 Year
  Sex: Female
  Weight: 49 kg

DRUGS (8)
  1. ATORVASTATIN [Suspect]
     Active Substance: ATORVASTATIN
     Indication: Ill-defined disorder
     Dosage: UNK
     Route: 065
     Dates: start: 20230310
  2. AMOXICILLIN [Concomitant]
     Active Substance: AMOXICILLIN
     Indication: Ill-defined disorder
     Dosage: 1 DOSAGE FORM, TID(TAKE ONE 3 TIMES/DAY FOR 5DAYS)
     Route: 065
     Dates: start: 20230310
  3. ASPIRIN [Concomitant]
     Active Substance: ASPIRIN
     Indication: Ill-defined disorder
     Dosage: 1 DOSAGE FORM, QD(TAKE ONE DAILY)
     Route: 065
     Dates: start: 20131003
  4. NITROGLYCERIN [Concomitant]
     Active Substance: NITROGLYCERIN
     Indication: Ill-defined disorder
     Dosage: UNK (PRN CHEST PAIN)
     Route: 065
     Dates: start: 20160921
  5. NYSTATIN [Concomitant]
     Active Substance: NYSTATIN
     Indication: Ill-defined disorder
     Dosage: 1 MILLILITER, QID(SWIRL AND SWALLOW 1ML FOUR TIMES A DAY)
     Route: 065
     Dates: start: 20230117, end: 20230124
  6. PREDNISOLONE [Concomitant]
     Active Substance: PREDNISOLONE
     Indication: Ill-defined disorder
     Dosage: 6 DOSAGE FORM, QD(TAKE 6 TABLETS DAILY FOR 5 DAYS)
     Route: 065
     Dates: start: 20230310
  7. BECLOMETHASONE DIPROPIONATE\FORMOTEROL FUMARATE\GLYCOPYRROLATE [Concomitant]
     Active Substance: BECLOMETHASONE DIPROPIONATE\FORMOTEROL FUMARATE\GLYCOPYRROLATE
     Indication: Ill-defined disorder
     Dosage: 2 DOSAGE FORM, BID(INHALE TWO DOSES TWICE A DAY)
     Route: 065
     Dates: start: 20220711
  8. VENTOLIN [Concomitant]
     Active Substance: ALBUTEROL SULFATE
     Indication: Ill-defined disorder
     Dosage: 2 DOSAGE FORM (INHALE 2 DOSES AS NEEDED)
     Route: 065
     Dates: start: 20220711

REACTIONS (1)
  - Rash [Unknown]

NARRATIVE: CASE EVENT DATE: 20230310
